FAERS Safety Report 8252491-6 (Version None)
Quarter: 2012Q2

REPORT INFORMATION
  Report Type: 
  Country: None (occurrence: None)
  Receive Date: 20120402
  Receipt Date: 20120327
  Transmission Date: 20120825
  Serious: Yes (Hospitalization)
  Sender: FDA-Public Use
  Company Number: US-BAXTER-2012BAX000984

PATIENT
  Sex: Female

DRUGS (2)
  1. DIANEAL [Suspect]
     Route: 033
     Dates: start: 20110501
  2. DIANEAL [Suspect]
     Indication: PERITONEAL DIALYSIS
     Route: 033
     Dates: start: 20110501

REACTIONS (2)
  - CEREBRAL ISCHAEMIA [None]
  - LETHARGY [None]
